FAERS Safety Report 4604823-5 (Version None)
Quarter: 2005Q2

REPORT INFORMATION
  Report Type: 
  Country: None (occurrence: None)
  Receive Date: 20050224
  Receipt Date: 20040707
  Transmission Date: 20051028
  Serious: Yes (Hospitalization)
  Sender: FDA-Public Use
  Company Number: 04P-163-0266021-00

PATIENT
  Age: 75 Year
  Sex: Female

DRUGS (1)
  1. DILAUDID [Suspect]
     Indication: PAIN
     Dosage: 1 MILLIGRAM/MILLILITERS, 2MG AT ONCE, THEN 1MG AS REQUIRED, INTRAVENOUS
     Route: 042
     Dates: start: 20040625, end: 20040625

REACTIONS (1)
  - CARDIAC ARREST [None]
